FAERS Safety Report 17560224 (Version 1)
Quarter: 2020Q1

REPORT INFORMATION
  Report Type: Report from Study
  Country: MX (occurrence: MX)
  Receive Date: 20200319
  Receipt Date: 20200319
  Transmission Date: 20200409
  Serious: Yes (Other)
  Sender: FDA-Public Use
  Company Number: NVSC2020MX077519

PATIENT
  Age: 76 Year
  Sex: Male
  Weight: 70 kg

DRUGS (3)
  1. EXFORGE [Suspect]
     Active Substance: AMLODIPINE BESYLATE\VALSARTAN
     Dosage: 1.5 DF, QD (320/5 MG)
     Route: 048
     Dates: start: 201910
  2. EXFORGE [Suspect]
     Active Substance: AMLODIPINE BESYLATE\VALSARTAN
     Indication: HYPERTENSION
     Dosage: 3 DF, PRN (2 MORNING AND 1 AT NIGHT OR AS NEEDED)
     Route: 048
     Dates: start: 2019
  3. GALVUS MET [Suspect]
     Active Substance: METFORMIN HYDROCHLORIDE\VILDAGLIPTIN
     Indication: DIABETES MELLITUS
     Dosage: 2 DF, QD
     Route: 048
     Dates: start: 2018

REACTIONS (8)
  - Ascites [Unknown]
  - Product prescribing error [Unknown]
  - Pulmonary oedema [Unknown]
  - Incorrect dose administered [Unknown]
  - Off label use [Unknown]
  - Oedema peripheral [Unknown]
  - Drug ineffective [Unknown]
  - Blood pressure fluctuation [Unknown]

NARRATIVE: CASE EVENT DATE: 201910
